FAERS Safety Report 20922123 (Version 1)
Quarter: 2022Q2

REPORT INFORMATION
  Report Type: Spontaneous
  Country: US (occurrence: US)
  Receive Date: 20220607
  Receipt Date: 20220607
  Transmission Date: 20220721
  Serious: Yes (Other)
  Sender: FDA-Public Use
  Company Number: US-AMGEN-USASP2022094727

PATIENT
  Age: 6 Year
  Sex: Male

DRUGS (4)
  1. BLINATUMOMAB [Suspect]
     Active Substance: BLINATUMOMAB
     Indication: Post transplant lymphoproliferative disorder
     Dosage: 15 MICROGRAM/M2, QD
     Route: 065
  2. RITUXIMAB [Suspect]
     Active Substance: RITUXIMAB
     Indication: Product used for unknown indication
     Dosage: UNK, QWK
     Route: 065
  3. ABATACEPT [Concomitant]
     Active Substance: ABATACEPT
  4. DEXAMETHASONE [Concomitant]
     Active Substance: DEXAMETHASONE

REACTIONS (3)
  - Post transplant lymphoproliferative disorder [Recovering/Resolving]
  - Diffuse large B-cell lymphoma [Unknown]
  - Off label use [Unknown]
